FAERS Safety Report 7312754-5 (Version None)
Quarter: 2011Q1

REPORT INFORMATION
  Report Type: 
  Country: None (occurrence: None)
  Receive Date: 20110224
  Receipt Date: 20110216
  Transmission Date: 20110831
  Serious: Yes (Death)
  Sender: FDA-Public Use
  Company Number: US-GENENTECH-312792

PATIENT
  Sex: Female
  Weight: 81.179 kg

DRUGS (7)
  1. VINCRISTINE [Concomitant]
     Indication: B-CELL LYMPHOMA
  2. DOXORUBICIN [Concomitant]
     Indication: B-CELL LYMPHOMA
  3. TYLENOL [Concomitant]
     Indication: PREMEDICATION
  4. CYCLOPHOSPHAMIDE [Concomitant]
     Indication: B-CELL LYMPHOMA
  5. RITUXAN [Suspect]
     Indication: B-CELL LYMPHOMA
     Dosage: 375 MG/M2, Q3W
     Route: 042
     Dates: start: 20110111, end: 20110111
  6. STEROIDS (UNK INGREDIENTS) [Concomitant]
     Indication: PREMEDICATION
  7. PREDNISONE [Concomitant]
     Indication: B-CELL LYMPHOMA

REACTIONS (2)
  - MYOCARDIAL INFARCTION [None]
  - INFUSION RELATED REACTION [None]
